FAERS Safety Report 20925216 (Version 1)
Quarter: 2022Q2

REPORT INFORMATION
  Report Type: Spontaneous
  Country: US (occurrence: US)
  Receive Date: 20220607
  Receipt Date: 20220607
  Transmission Date: 20220721
  Serious: Yes (Other)
  Sender: FDA-Public Use
  Company Number: US-PFIZER INC-202200785706

PATIENT
  Age: 88 Year
  Sex: Female
  Weight: 51.7 kg

DRUGS (1)
  1. GENTAMICIN SULFATE [Suspect]
     Active Substance: GENTAMICIN SULFATE
     Dosage: UNK

REACTIONS (4)
  - Drug dependence [Unknown]
  - Deafness [Unknown]
  - Drug resistance [Unknown]
  - Pain [Unknown]
